FAERS Safety Report 6265410-9 (Version None)
Quarter: 2009Q3

REPORT INFORMATION
  Report Type: 
  Country: None (occurrence: None)
  Receive Date: 20090713
  Receipt Date: 20090630
  Transmission Date: 20100115
  Serious: Yes (Other)
  Sender: FDA-Public Use
  Company Number: JP-BRISTOL-MYERS SQUIBB COMPANY-14692701

PATIENT
  Age: 40 Year
  Sex: Male
  Weight: 67 kg

DRUGS (12)
  1. ABILIFY [Suspect]
     Indication: SCHIZOPHRENIA
     Dosage: 05-17MAR08:12MG;18-29MAR,05JUN-28OCT08:18MG;29OCT-12NV08:24MG;13-24NOV08:30MG;25NOV-ONG:18MG
     Route: 048
     Dates: start: 20080305
  2. RISPERDAL [Concomitant]
     Dates: end: 20080708
  3. BIPERIDEN HYDROCHLORIDE TAB [Concomitant]
     Dates: end: 20080721
  4. TEGRETOL [Concomitant]
     Dates: end: 20080721
  5. SEROQUEL [Concomitant]
  6. MAGNESIUM OXIDE [Concomitant]
  7. BIO-THREE [Concomitant]
  8. PAXIL [Concomitant]
     Dosage: TABLET
  9. SODIUM PICOSULFATE [Concomitant]
     Dosage: LIQUID
  10. FORSENID [Concomitant]
     Dosage: TAB
     Dates: start: 20070403
  11. EURODIN [Concomitant]
     Dates: start: 20080325
  12. VALPROATE SODIUM [Concomitant]
     Dates: start: 20080722

REACTIONS (1)
  - PSYCHIATRIC SYMPTOM [None]
